FAERS Safety Report 15976042 (Version 2)
Quarter: 2019Q1

REPORT INFORMATION
  Report Type: Spontaneous
  Country: JP (occurrence: JP)
  Receive Date: 20190218
  Receipt Date: 20190301
  Transmission Date: 20190418
  Serious: Yes (Hospitalization)
  Sender: FDA-Public Use
  Company Number: JP-ELI_LILLY_AND_COMPANY-JP201902004709AA

PATIENT
  Age: 91 Year
  Sex: Female
  Weight: 39 kg

DRUGS (14)
  1. TRULICITY [Suspect]
     Active Substance: DULAGLUTIDE
     Indication: TYPE 2 DIABETES MELLITUS
     Dosage: 0.75 MG, WEEKLY (1/W)
     Route: 058
     Dates: start: 20181004, end: 20181004
  2. MITIGLINIDE CA OD FUSO [Concomitant]
     Indication: TYPE 2 DIABETES MELLITUS
     Dosage: 10 MG, TID
     Route: 048
     Dates: start: 20181001, end: 20181006
  3. CARVEDILOL. [Concomitant]
     Active Substance: CARVEDILOL
     Dosage: 2.5 MG, BID
     Route: 048
     Dates: end: 20181006
  4. INSULIN GLARGINE [Concomitant]
     Active Substance: INSULIN GLARGINE
     Indication: PRODUCT USED FOR UNKNOWN INDICATION
     Route: 058
  5. MIGLITOL TOWA [Suspect]
     Active Substance: MIGLITOL
     Indication: TYPE 2 DIABETES MELLITUS
     Dosage: 50 MG, TID
     Route: 048
     Dates: start: 20181001, end: 20181006
  6. LANSOPRAZOLE TOWA [Concomitant]
     Active Substance: LANSOPRAZOLE
     Dosage: 15 MG, EACH MORNING
     Route: 048
     Dates: end: 20181006
  7. AUGMENTIN COMBINATION [Concomitant]
     Dosage: 250 MG, TID
     Route: 048
     Dates: start: 20181004, end: 20181006
  8. CEFTRIAXONE SODIUM. [Concomitant]
     Active Substance: CEFTRIAXONE SODIUM
     Indication: URINARY TRACT INFECTION
     Dosage: 1 G, UNK
     Route: 041
     Dates: start: 20181003, end: 20181003
  9. BAYASPIRIN [Concomitant]
     Active Substance: ASPIRIN
     Dosage: 100 MG, EACH MORNING
     Route: 048
     Dates: end: 20181006
  10. IMIDAPRIL HYDROCHLORIDE TOWA [Concomitant]
     Dosage: 2.5 MG, EACH MORNING
     Route: 048
     Dates: end: 20181006
  11. AMOXICILLIN. [Concomitant]
     Active Substance: AMOXICILLIN
     Dosage: 250 MG, TID
     Route: 048
     Dates: start: 20181004, end: 20181006
  12. YOKUKANSAN [Concomitant]
     Active Substance: HERBALS
     Dosage: 2.5 MG, EACH EVENING
     Route: 048
     Dates: end: 20181006
  13. TORASEMIDE KO [Concomitant]
     Dosage: 4 MG, EACH MORNING
     Route: 048
     Dates: end: 20181006
  14. CEFTRIAXONE SODIUM. [Concomitant]
     Active Substance: CEFTRIAXONE SODIUM
     Indication: ILEUS PARALYTIC
     Dosage: 1 G, UNK
     Route: 041
     Dates: start: 20181006

REACTIONS (1)
  - Ileus paralytic [Recovered/Resolved]

NARRATIVE: CASE EVENT DATE: 20181005
